FAERS Safety Report 23777737 (Version 1)
Quarter: 2024Q2

REPORT INFORMATION
  Report Type: Spontaneous
  Country: AU (occurrence: AU)
  Receive Date: 20240424
  Receipt Date: 20240424
  Transmission Date: 20240716
  Serious: Yes (Other)
  Sender: FDA-Public Use
  Company Number: AU-PFIZER INC-PV202400052754

PATIENT
  Age: 21 Year
  Sex: Male

DRUGS (7)
  1. DOXORUBICIN HYDROCHLORIDE [Suspect]
     Active Substance: DOXORUBICIN HYDROCHLORIDE
     Indication: Hepatic sarcoma
     Dosage: UNK, CYCLIC
  2. DOXORUBICIN HYDROCHLORIDE [Suspect]
     Active Substance: DOXORUBICIN HYDROCHLORIDE
     Dosage: UNK
  3. VINCRISTINE SULFATE [Suspect]
     Active Substance: VINCRISTINE SULFATE
     Indication: Hepatic sarcoma
     Dosage: UNK, CYCLIC
  4. VINCRISTINE SULFATE [Suspect]
     Active Substance: VINCRISTINE SULFATE
     Dosage: UNK, CYCLIC
  5. CYCLOPHOSPHAMIDE [Suspect]
     Active Substance: CYCLOPHOSPHAMIDE
     Indication: Hepatic sarcoma
     Dosage: UNK, CYCLIC
  6. ETOPOSIDE [Suspect]
     Active Substance: ETOPOSIDE
     Indication: Hepatic sarcoma
     Dosage: UNK, CYCLIC
  7. IFOSFAMIDE [Suspect]
     Active Substance: IFOSFAMIDE
     Indication: Hepatic sarcoma
     Dosage: UNK, CYCLIC

REACTIONS (3)
  - Osteoporotic fracture [Unknown]
  - Off label use [Unknown]
  - Drug effective for unapproved indication [Unknown]
